FAERS Safety Report 22133956 (Version 3)
Quarter: 2023Q2

REPORT INFORMATION
  Report Type: Spontaneous
  Country: US (occurrence: US)
  Receive Date: 20230324
  Receipt Date: 20230410
  Transmission Date: 20230721
  Serious: Yes (Other)
  Sender: FDA-Public Use
  Company Number: US-BIOVITRUM-2023-US-005877

PATIENT
  Age: 35 Year
  Sex: Female

DRUGS (1)
  1. KINERET [Suspect]
     Active Substance: ANAKINRA
     Indication: Rheumatoid arthritis
     Dosage: 100 MG DAILY
     Route: 058
     Dates: start: 20230124, end: 202302

REACTIONS (4)
  - Still^s disease [Unknown]
  - Asthenia [Unknown]
  - Product dose omission issue [Unknown]
  - Drug ineffective [Unknown]
